FAERS Safety Report 8586962-X (Version None)
Quarter: 2012Q3

REPORT INFORMATION
  Report Type: 
  Country: None (occurrence: None)
  Receive Date: 20120810
  Receipt Date: 20120806
  Transmission Date: 20120928
  Serious: Yes (Congenital Anomaly)
  Sender: FDA-Public Use
  Company Number: FR-PFIZER INC-2012190258

PATIENT
  Sex: Male
  Weight: 3.62 kg

DRUGS (3)
  1. EFFEXOR [Suspect]
     Dosage: 1 DF, 1X/DAY
     Route: 064
     Dates: start: 20090403
  2. EFFEXOR [Suspect]
     Dosage: 1 DF, CYCLIC, EVERY 4 DAYS
     Route: 064
     Dates: start: 20090511, end: 20090519
  3. BROMAZEPAM [Suspect]
     Dosage: 0.25 DF, AS NEEDED
     Route: 064

REACTIONS (1)
  - CLEFT LIP [None]
